FAERS Safety Report 5459982-1 (Version None)
Quarter: 2007Q3

REPORT INFORMATION
  Report Type: 
  Country: None (occurrence: None)
  Receive Date: 20070919
  Receipt Date: 20070504
  Transmission Date: 20080115
  Serious: No
  Sender: FDA-Public Use
  Company Number: US-ASTRAZENECA-2007UW09648

PATIENT
  Age: 60 Year
  Sex: Female
  Weight: 77.1 kg

DRUGS (2)
  1. SEROQUEL [Suspect]
     Indication: DEPRESSION
     Route: 048
     Dates: start: 20070401, end: 20070401
  2. SEROQUEL [Suspect]
     Indication: ANXIETY
     Route: 048
     Dates: start: 20070401, end: 20070401

REACTIONS (15)
  - BURNING SENSATION [None]
  - DEPRESSED MOOD [None]
  - EUPHORIC MOOD [None]
  - LIP DISORDER [None]
  - MUSCLE SPASMS [None]
  - MUSCLE TIGHTNESS [None]
  - MYALGIA [None]
  - PAIN OF SKIN [None]
  - PARAESTHESIA ORAL [None]
  - PRURITUS [None]
  - RASH [None]
  - SOMNOLENCE [None]
  - TACHYCARDIA [None]
  - TONGUE DISORDER [None]
  - UPPER RESPIRATORY TRACT CONGESTION [None]
